FAERS Safety Report 7335090-X (Version None)
Quarter: 2011Q1

REPORT INFORMATION
  Report Type: 
  Country: None (occurrence: None)
  Receive Date: 20110307
  Receipt Date: 20110301
  Transmission Date: 20110831
  Serious: Yes (Death)
  Sender: FDA-Public Use
  Company Number: GB-SANOFI-AVENTIS-2011SA002288

PATIENT
  Age: 77 Year
  Sex: Male
  Weight: 80.9 kg

DRUGS (3)
  1. DOCETAXEL [Suspect]
     Indication: PROSTATE CANCER
     Route: 042
     Dates: start: 20100908, end: 20100908
  2. OMEPRAZOLE [Concomitant]
  3. PREDNISOLONE [Concomitant]
     Indication: PROSTATE CANCER
     Dates: start: 20100908, end: 20100913

REACTIONS (3)
  - ACUTE MYOCARDIAL INFARCTION [None]
  - ARTERIOSCLEROSIS CORONARY ARTERY [None]
  - DEATH [None]
